FAERS Safety Report 15345850 (Version 2)
Quarter: 2018Q3

REPORT INFORMATION
  Report Type: Spontaneous
  Country: IT (occurrence: IT)
  Receive Date: 20180904
  Receipt Date: 20180906
  Transmission Date: 20181010
  Serious: Yes (Hospitalization, Other)
  Sender: FDA-Public Use
  Company Number: IT-BRISTOL-MYERS SQUIBB COMPANY-BMS-2018-081097

PATIENT
  Age: 82 Year
  Sex: Male

DRUGS (1)
  1. ELIQUIS [Suspect]
     Active Substance: APIXABAN
     Indication: CEREBROVASCULAR ACCIDENT PROPHYLAXIS
     Dosage: 10 MG, (DRUG DOSAGE INTERVAL OF 1 DAY)
     Route: 048
     Dates: start: 20180101, end: 20180601

REACTIONS (2)
  - Partial seizures [Recovered/Resolved with Sequelae]
  - Haematoma [Recovered/Resolved with Sequelae]

NARRATIVE: CASE EVENT DATE: 20180601
